FAERS Safety Report 14630105 (Version 1)
Quarter: 2018Q1

REPORT INFORMATION
  Report Type: Spontaneous
  Country: US (occurrence: US)
  Receive Date: 20180313
  Receipt Date: 20180313
  Transmission Date: 20180509
  Serious: No
  Sender: FDA-Public Use
  Company Number: US-PFIZER INC-2018098192

PATIENT
  Age: 79 Year
  Sex: Male
  Weight: 90.7 kg

DRUGS (1)
  1. SUTENT [Suspect]
     Active Substance: SUNITINIB MALATE
     Indication: RENAL CANCER
     Dosage: 50 MG, CYCLIC (DAY 1-28 Q 42 DAYS)
     Route: 048
     Dates: start: 20180202, end: 20180223

REACTIONS (12)
  - Stomatitis [Unknown]
  - Decreased appetite [Unknown]
  - Asthenia [Unknown]
  - Epistaxis [Unknown]
  - Fatigue [Unknown]
  - Dysgeusia [Unknown]
  - Eructation [Unknown]
  - Platelet count decreased [Unknown]
  - Throat clearing [Unknown]
  - Dyspepsia [Unknown]
  - Cough [Unknown]
  - Diarrhoea [Unknown]
